FAERS Safety Report 13394933 (Version 3)
Quarter: 2017Q2

REPORT INFORMATION
  Report Type: Report from Study
  Country: US (occurrence: US)
  Receive Date: 20170403
  Receipt Date: 20170425
  Transmission Date: 20170830
  Serious: No
  Sender: FDA-Public Use
  Company Number: US-AMGEN-USASL2017046666

PATIENT
  Sex: Female

DRUGS (1)
  1. ENBREL [Suspect]
     Active Substance: ETANERCEPT
     Indication: PSORIASIS
     Dosage: 50 MG, QWK
     Route: 065

REACTIONS (7)
  - Rash [Unknown]
  - Joint stiffness [Unknown]
  - Contusion [Unknown]
  - Paraesthesia [Unknown]
  - Pruritus [Unknown]
  - Neuralgia [Not Recovered/Not Resolved]
  - Myalgia [Unknown]
